FAERS Safety Report 5290820-6 (Version None)
Quarter: 2007Q2

REPORT INFORMATION
  Report Type: 
  Country: None (occurrence: None)
  Receive Date: 20070409
  Receipt Date: 20070328
  Transmission Date: 20071010
  Serious: Yes (Hospitalization)
  Sender: FDA-Public Use
  Company Number: FR-PFIZER INC-2007025561

PATIENT
  Age: 62 Year
  Sex: Female
  Weight: 57 kg

DRUGS (6)
  1. ALDACTONE [Suspect]
     Route: 048
     Dates: start: 20061006, end: 20061113
  2. VALGANCICLOVIR HCL [Suspect]
     Indication: PNEUMOCYSTIS JIROVECI INFECTION
     Route: 048
  3. MYCOPHENOLATE SODIUM [Suspect]
     Indication: RENAL TRANSPLANT
     Route: 048
  4. PREDNISONE [Concomitant]
     Route: 048
  5. GANCICLOVIR [Concomitant]
     Route: 048
  6. TACROLIMUS [Concomitant]
     Route: 048

REACTIONS (1)
  - PANCYTOPENIA [None]
